FAERS Safety Report 20563125 (Version 1)
Quarter: 2022Q1

REPORT INFORMATION
  Report Type: Spontaneous
  Country: NL (occurrence: NL)
  Receive Date: 20220307
  Receipt Date: 20220307
  Transmission Date: 20220424
  Serious: Yes (Hospitalization)
  Sender: FDA-Public Use
  Company Number: NL-LRB-00794475

PATIENT
  Sex: Female
  Weight: 98 kg

DRUGS (4)
  1. OXYCODONE [Suspect]
     Active Substance: OXYCODONE
     Indication: Postoperative analgesia
     Dosage: 5 MILLIGRAM, EVERY FOUR HOUR (6XDD 1 TABLET)
     Route: 065
     Dates: start: 2019, end: 20211125
  2. OXYCODONE [Suspect]
     Active Substance: OXYCODONE
     Dosage: 10 MILLIGRAM, ONCE A DAY (ONLY TOOK 1 OR 2 OXYCODONE)
     Route: 065
     Dates: start: 2019
  3. OXYCODONE [Suspect]
     Active Substance: OXYCODONE
     Dosage: 5 MILLIGRAM, ONCE A DAY (ONLY TOOK 1 OR 2 OXYCODONE)
     Route: 065
     Dates: start: 2019
  4. GABAPENTIN [Concomitant]
     Active Substance: GABAPENTIN
     Indication: Product used for unknown indication
     Dosage: UNK
     Route: 065

REACTIONS (5)
  - Psychotic disorder [Recovering/Resolving]
  - Confusional state [Recovering/Resolving]
  - Amnesia [Recovering/Resolving]
  - Headache [Recovering/Resolving]
  - Somnolence [Recovering/Resolving]
